FAERS Safety Report 4612404-2 (Version None)
Quarter: 2005Q1

REPORT INFORMATION
  Report Type: 
  Country: None (occurrence: None)
  Receive Date: 20050316
  Receipt Date: 20050228
  Transmission Date: 20050727
  Serious: Yes (Hospitalization)
  Sender: FDA-Public Use
  Company Number: USA050289928

PATIENT
  Age: 78 Year
  Sex: Male

DRUGS (4)
  1. ALIMTA [Suspect]
     Indication: NON-SMALL CELL LUNG CANCER STAGE IV
     Dosage: 500 MG/M2
     Dates: start: 20041230
  2. VITAMIN B-12 [Concomitant]
  3. FOLIC ACID [Concomitant]
  4. DECADRON [Concomitant]

REACTIONS (4)
  - CONFUSIONAL STATE [None]
  - DYSARTHRIA [None]
  - GAIT DISTURBANCE [None]
  - NERVOUS SYSTEM DISORDER [None]
